FAERS Safety Report 10697134 (Version 1)
Quarter: 2015Q1

REPORT INFORMATION
  Report Type: Spontaneous
  Country: US (occurrence: None)
  Receive Date: 20150106
  Receipt Date: 20150106
  Transmission Date: 20150721
  Serious: Yes (Hospitalization)
  Sender: FDA-Public Use
  Company Number: COM-002795

PATIENT
  Age: 42 Year
  Sex: Female
  Weight: 89.36 kg

DRUGS (1)
  1. MUCUS RELIEF COLD, FLU AND SORE THROAT MAXIMUM STRENGTH [Suspect]
     Active Substance: ACETAMINOPHEN\DEXTROMETHORPHAN HYDROBROMIDE\GUAIFENESIN\PHENYLEPHRINE HYDROCHLORIDE
     Indication: NASOPHARYNGITIS
     Dosage: EARLY OCTOBER, EVERY FOUR HOURS
     Route: 048

REACTIONS (3)
  - Seizure [None]
  - Catatonia [None]
  - Overdose [None]

NARRATIVE: CASE EVENT DATE: 201410
